FAERS Safety Report 10062887 (Version 1)
Quarter: 2014Q1

REPORT INFORMATION
  Report Type: Spontaneous
  Country: US (occurrence: None)
  Receive Date: 20140318
  Receipt Date: 20140318
  Transmission Date: 20141002
  Serious: Yes (Hospitalization)
  Sender: FDA-Public Use
  Company Number: 163-21660-13083897

PATIENT
  Age: 66 Year
  Sex: Female

DRUGS (4)
  1. ABRAXANE(PACLITAXEL) [Suspect]
     Indication: NON-SMALL CELL LUNG CANCER
     Dates: start: 20130712
  2. CARBOPLATIN(CARBOPLATIN) [Concomitant]
  3. DEXAMETHASONE(DEXAMETHASONE) [Concomitant]
  4. ODANSETRON(ONDANSETRON) [Concomitant]

REACTIONS (1)
  - Toxic epidermal necrolysis [None]
